FAERS Safety Report 15730218 (Version 4)
Quarter: 2019Q2

REPORT INFORMATION
  Report Type: Spontaneous
  Country: PL (occurrence: PL)
  Receive Date: 20181217
  Receipt Date: 20190506
  Transmission Date: 20190711
  Serious: Yes (Other)
  Sender: FDA-Public Use
  Company Number: PL-B.I. PHARMACEUTICALS,INC./RIDGEFIELD-2018-12-000874

PATIENT
  Age: 69 Year
  Sex: Female
  Weight: 84 kg

DRUGS (16)
  1. AMLODIPINE [Interacting]
     Active Substance: AMLODIPINE BESYLATE
     Indication: HYPERTENSION
     Route: 048
  2. CANDESARTAN. [Interacting]
     Active Substance: CANDESARTAN
     Indication: HYPERTENSION
     Route: 065
  3. SIMVASTATIN. [Interacting]
     Active Substance: SIMVASTATIN
     Indication: HYPERTENSION
     Route: 048
  4. CLOPIDOGREL [Interacting]
     Active Substance: CLOPIDOGREL BISULFATE
     Indication: PRODUCT USED FOR UNKNOWN INDICATION
     Route: 065
  5. RAMIPRIL. [Interacting]
     Active Substance: RAMIPRIL
     Indication: HYPERTENSION
     Route: 065
  6. VALSARTAN. [Interacting]
     Active Substance: VALSARTAN
     Indication: HYPERTENSION
     Route: 065
  7. HYDROXYZINE [Interacting]
     Active Substance: HYDROXYZINE HYDROCHLORIDE
     Indication: PRODUCT USED FOR UNKNOWN INDICATION
     Route: 065
  8. LEVOTHYROXINE SODIUM. [Concomitant]
     Active Substance: LEVOTHYROXINE SODIUM
     Indication: HYPOTHYROIDISM
     Route: 065
  9. MICARDIS [Suspect]
     Active Substance: TELMISARTAN
     Indication: HYPERTENSION
     Route: 048
  10. CILAZAPRIL [Interacting]
     Active Substance: CILAZAPRIL ANHYDROUS
     Indication: HYPERTENSION
     Route: 065
  11. ACETYLSALICYLIC ACID [Interacting]
     Active Substance: ASPIRIN
     Indication: HYPERTENSION
     Route: 065
  12. CAPTOPRIL. [Concomitant]
     Active Substance: CAPTOPRIL
     Indication: HYPERTENSION
     Route: 060
  13. METOPROLOL. [Interacting]
     Active Substance: METOPROLOL
     Indication: PRODUCT USED FOR UNKNOWN INDICATION
     Route: 065
  14. INDAPAMIDE. [Interacting]
     Active Substance: INDAPAMIDE
     Indication: HYPERTENSION
     Route: 065
  15. LERCANIDIPINE HYDROCHLORIDE [Interacting]
     Active Substance: LERCANIDIPINE HYDROCHLORIDE
     Indication: HYPERTENSION
     Route: 065
  16. PERINDOPRIL [Interacting]
     Active Substance: PERINDOPRIL
     Indication: HYPERTENSION
     Route: 065

REACTIONS (14)
  - Malaise [Unknown]
  - Tinnitus [Unknown]
  - Confusional state [Unknown]
  - Chest pain [Recovered/Resolved]
  - Myalgia [Recovered/Resolved]
  - Intentional product use issue [Unknown]
  - Cough [Recovered/Resolved]
  - Feeling abnormal [Recovered/Resolved]
  - Labile hypertension [Unknown]
  - Drug intolerance [Unknown]
  - Oedema peripheral [Recovered/Resolved]
  - Head discomfort [Unknown]
  - Muscle spasms [Recovered/Resolved]
  - Labelled drug-drug interaction medication error [Unknown]
